FAERS Safety Report 9556826 (Version 1)
Quarter: 2013Q3

REPORT INFORMATION
  Report Type: Spontaneous
  Country: US (occurrence: None)
  Receive Date: 20130906
  Receipt Date: 20130906
  Transmission Date: 20140515
  Serious: Yes (Other)
  Sender: FDA-Public Use
  Company Number: 163-POMAL-13052608

PATIENT
  Age: 69 Year
  Sex: Female
  Weight: 79.4 kg

DRUGS (25)
  1. POMALYST [Suspect]
     Indication: PLASMA CELL MYELOMA
     Dosage: 4 MG, 21 IN 21 D, PO
     Route: 048
     Dates: start: 20130419
  2. BLOOD TRANSFUSION (BLOOD AND RELATED PRODUCTS) [Concomitant]
  3. ZOMETA (ZOLEDRONIC ACID) [Concomitant]
  4. LEVOTHYROXINE (LEVOTHYROXINE) [Concomitant]
  5. CENTRUM SILVER (CENTRUM SILVER) [Concomitant]
  6. DEXAMETHASONE (DEXAMETHASONE) (4 MILLIGRAM, TABLETS) [Concomitant]
  7. LIPITOR (ATORVASTATIN) [Concomitant]
  8. ATENOLOL (ATENOLOL) [Concomitant]
  9. METFORMIN HCL (METFORMIN HYDROCHLORIDE) [Concomitant]
  10. ACYCLOVIR (ACICLOVIR) (ACICLOVIR) [Concomitant]
  11. DIGOXIN (DIGOXIN) [Concomitant]
  12. LISINOPRIL (LISINOPRIL) [Concomitant]
  13. NEXIUM (ESOMEPRAZOLE) [Concomitant]
  14. DILTIAZEM HCL ER (CAPSULES) [Concomitant]
  15. ENOXAPARIN (ENOXAPARIN) (SYRUP) [Concomitant]
  16. CALCIUM + VITAMIN D (LEKOVIT CA) (TABLETS) [Concomitant]
  17. ASPIRIN ADULT (ACETYLSALICYLIC ACID) [Concomitant]
  18. DAPSONE (DAPSONE) [Concomitant]
  19. LUMIGAN (BIMATOPROST) (EYE DROPS) [Concomitant]
  20. TIMOLOL (TIMOLOL) (EYE DROPS) [Concomitant]
  21. CITRUCEL (METHYLCELLULOSE) [Concomitant]
  22. ALPRAZOLAM (ALPRAZOLAM) [Concomitant]
  23. ARANESP (DARBEPOETIN ALFA) [Concomitant]
  24. VENTOLIN HFA (SALBUTAMOL SULFATE) (INHALANT) [Concomitant]
  25. MIRALAX (MACROGOL) (POWDER) [Concomitant]

REACTIONS (7)
  - Tongue disorder [None]
  - Sinusitis [None]
  - Full blood count decreased [None]
  - Neutrophil count decreased [None]
  - Thrombocytopenia [None]
  - White blood cell count decreased [None]
  - Haemoglobin decreased [None]
